FAERS Safety Report 8130806-7 (Version None)
Quarter: 2012Q1

REPORT INFORMATION
  Report Type: 
  Country: None (occurrence: None)
  Receive Date: 20120213
  Receipt Date: 20120203
  Transmission Date: 20120608
  Serious: Yes (Hospitalization)
  Sender: FDA-Public Use
  Company Number: US-BIOGENIDEC-2005BI018141

PATIENT
  Age: 47 Year
  Sex: Female

DRUGS (1)
  1. AVONEX [Suspect]
     Indication: MULTIPLE SCLEROSIS
     Route: 030
     Dates: start: 19981230

REACTIONS (5)
  - DIABETES MELLITUS [None]
  - MULTIPLE SCLEROSIS RELAPSE [None]
  - STRESS [None]
  - PNEUMONIA [None]
  - GASTRIC DISORDER [None]
